FAERS Safety Report 5513374-5 (Version None)
Quarter: 2007Q4

REPORT INFORMATION
  Report Type: 
  Country: None (occurrence: None)
  Receive Date: 20071108
  Receipt Date: 20071024
  Transmission Date: 20080405
  Serious: Yes (Death, Hospitalization)
  Sender: FDA-Public Use
  Company Number: MEDI-0006042

PATIENT
  Age: 3 Month
  Sex: Male

DRUGS (2)
  1. SYNAGIS [Suspect]
     Indication: ANTIVIRAL PROPHYLAXIS
     Dosage: 15 MG/KG
     Dates: start: 20061031, end: 20061128
  2. SYNAGIS [Suspect]
     Indication: ANTIVIRAL PROPHYLAXIS
     Dosage: 15 MG/KG
     Dates: start: 20061031

REACTIONS (5)
  - ANAEMIA [None]
  - BRONCHIOLITIS [None]
  - FLUID INTAKE REDUCED [None]
  - HYPONATRAEMIA [None]
  - SUDDEN INFANT DEATH SYNDROME [None]
